FAERS Safety Report 21715652 (Version 1)
Quarter: 2022Q4

REPORT INFORMATION
  Report Type: Spontaneous
  Country: FR (occurrence: FR)
  Receive Date: 20221212
  Receipt Date: 20221212
  Transmission Date: 20230113
  Serious: Yes (Other)
  Sender: FDA-Public Use
  Company Number: None

PATIENT
  Age: 31 Year
  Sex: Female

DRUGS (2)
  1. METHOTREXATE [Interacting]
     Active Substance: METHOTREXATE
     Indication: Systemic lupus erythematosus
     Dosage: 17.5 MILLIGRAM, QW
     Route: 065
     Dates: start: 20220808
  2. KEPPRA [Interacting]
     Active Substance: LEVETIRACETAM
     Indication: Epilepsy
     Dosage: 2000 MILLIGRAM, QD
     Route: 048

REACTIONS (3)
  - Symptom recurrence [Unknown]
  - Epilepsy [Unknown]
  - Drug interaction [Unknown]
